FAERS Safety Report 13679662 (Version 31)
Quarter: 2019Q1

REPORT INFORMATION
  Report Type: Spontaneous
  Country: FR (occurrence: FR)
  Receive Date: 20170622
  Receipt Date: 20190107
  Transmission Date: 20190417
  Serious: Yes (Death, Hospitalization, Other)
  Sender: FDA-Public Use
  Company Number: FR-PFIZER INC-2017271714

PATIENT
  Age: 71 Year
  Sex: Male
  Weight: 113.4 kg

DRUGS (28)
  1. DAPTOMYCIN. [Suspect]
     Active Substance: DAPTOMYCIN
     Dosage: 800 MG, 1X/DAY
     Route: 042
     Dates: start: 20170110, end: 20170201
  2. TRAMADOL HYDROCHLORID/PARACETAMOL [Suspect]
     Active Substance: ACETAMINOPHEN\TRAMADOL HYDROCHLORIDE
     Dosage: 8 DF, 1X/DAY
     Route: 048
     Dates: start: 20161201, end: 20170119
  3. POLARAMINE [Concomitant]
     Active Substance: DEXCHLORPHENIRAMINE MALEATE
     Dosage: UNK
     Route: 065
  4. LANTUS [Concomitant]
     Active Substance: INSULIN GLARGINE
     Dosage: UNK
  5. CUBICIN [Suspect]
     Active Substance: DAPTOMYCIN
     Dosage: 800 MG, QD
     Route: 042
     Dates: start: 20170110, end: 20170201
  6. PIPERACILLIN/TAZOBACTAM [Suspect]
     Active Substance: PIPERACILLIN SODIUM\TAZOBACTAM SODIUM
     Indication: SKIN INFECTION
     Dosage: 1 DF, 3X/DAY
     Route: 042
     Dates: start: 20161204, end: 20170130
  7. RACECADOTRIL [Suspect]
     Active Substance: RACECADOTRIL
     Dosage: 100 MG, TID (1 DF)
     Route: 048
     Dates: start: 20161209, end: 20170119
  8. VANCOMYCIN HYDROCHLORIDE. [Suspect]
     Active Substance: VANCOMYCIN HYDROCHLORIDE
     Dosage: UNK
     Route: 065
  9. SIMBICORT TURBUHALER [Suspect]
     Active Substance: BUDESONIDE\FORMOTEROL FUMARATE
     Dosage: 1 DF, QD
     Route: 055
     Dates: start: 20161220, end: 20170119
  10. DUPHALAC [Concomitant]
     Active Substance: LACTULOSE
     Dosage: UNK
  11. PANTOPRAZOLE [Suspect]
     Active Substance: PANTOPRAZOLE
     Dosage: UNK
     Route: 042
     Dates: start: 20161225, end: 20170119
  12. DAPTOMYCIN. [Suspect]
     Active Substance: DAPTOMYCIN
     Dosage: 800 MG, 1X/DAY
     Route: 042
     Dates: start: 20170110
  13. PRIMPERAN [Suspect]
     Active Substance: METOCLOPRAMIDE HYDROCHLORIDE
     Dosage: 10 MG, TID (3 DF, TID (1 DF TID))
     Route: 048
     Dates: start: 20161224, end: 20170119
  14. QUESTRAN [Suspect]
     Active Substance: CHOLESTYRAMINE
     Dosage: 4 G, QD
     Route: 048
     Dates: start: 20161216, end: 20170119
  15. RIFADIN [Suspect]
     Active Substance: RIFAMPIN
     Dosage: UNK
     Route: 065
  16. DIFFU-K [Concomitant]
     Active Substance: POTASSIUM CHLORIDE
     Dosage: UNK
     Route: 065
  17. LOVENOX [Concomitant]
     Active Substance: ENOXAPARIN SODIUM
     Dosage: UNK
     Route: 065
     Dates: start: 20170114
  18. LINEZOLIDE ARROW [Suspect]
     Active Substance: LINEZOLID
     Indication: SKIN INFECTION
     Dosage: 600 MG, BID
     Route: 048
     Dates: start: 20161222, end: 20170110
  19. ULTRAVIST [Suspect]
     Active Substance: IOPROMIDE
     Indication: CHEST SCAN
     Dosage: 370 MG, UNK
     Route: 042
     Dates: start: 20170116, end: 20170116
  20. QUESTRAN [Suspect]
     Active Substance: CHOLESTYRAMINE
     Dosage: 4 G, 1X/DAY
     Route: 048
     Dates: start: 20161216, end: 20170119
  21. RIFAMPICIN [Suspect]
     Active Substance: RIFAMPIN
  22. KARDEGIC [Concomitant]
     Active Substance: ASPIRIN DL-LYSINE
     Dosage: UNK
     Route: 065
  23. FUROSEMIDE. [Concomitant]
     Active Substance: FUROSEMIDE
     Dosage: UNK
  24. LINEZOLID. [Suspect]
     Active Substance: LINEZOLID
     Indication: SKIN INFECTION
     Dosage: 600 MG, BID
     Route: 048
     Dates: start: 20161222, end: 20170110
  25. NEFOPAM [Suspect]
     Active Substance: NEFOPAM
     Dosage: UNK
     Route: 042
     Dates: start: 20161202, end: 20170119
  26. METOCLOPRAMIDE HYDROCHLORIDE. [Suspect]
     Active Substance: METOCLOPRAMIDE HYDROCHLORIDE
     Dosage: 30 MG, 1X/DAY
     Route: 048
  27. UMULINE ZINC COMPOSE [Concomitant]
     Active Substance: INSULIN HUMAN
     Dosage: UNK
  28. LOPERAMIDE [Concomitant]
     Active Substance: LOPERAMIDE
     Dosage: UNK
     Route: 065

REACTIONS (17)
  - Hyperammonaemia [Fatal]
  - Dyspnoea [Fatal]
  - Thrombocytopenia [Fatal]
  - Rash maculo-papular [Fatal]
  - Eosinophilic pneumonia [Fatal]
  - Rectal haemorrhage [Fatal]
  - Pulmonary interstitial emphysema syndrome [Fatal]
  - Sepsis [Fatal]
  - Diffuse alveolar damage [Fatal]
  - Eczema [Fatal]
  - Restlessness [Fatal]
  - Acute kidney injury [Fatal]
  - Hepatic encephalopathy [Fatal]
  - Alveolar lung disease [Fatal]
  - Glomerular filtration rate decreased [Fatal]
  - Eosinophilia [Fatal]
  - Generalised oedema [Fatal]

NARRATIVE: CASE EVENT DATE: 20161227
